FAERS Safety Report 18052311 (Version 2)
Quarter: 2020Q4

REPORT INFORMATION
  Report Type: Spontaneous
  Country: US (occurrence: US)
  Receive Date: 20200722
  Receipt Date: 20201202
  Transmission Date: 20210113
  Serious: No
  Sender: FDA-Public Use
  Company Number: US-ALLERGAN-2023837US

PATIENT
  Sex: Female

DRUGS (1)
  1. NAMENDA XR [Suspect]
     Active Substance: MEMANTINE HYDROCHLORIDE
     Indication: AUTISM SPECTRUM DISORDER
     Dosage: ACTUAL: 3 (28 MG CAPS) IN THE MORNING
     Route: 048
     Dates: start: 20140527

REACTIONS (1)
  - Off label use [Unknown]
